FAERS Safety Report 12739517 (Version 1)
Quarter: 2016Q3

REPORT INFORMATION
  Report Type: Spontaneous
  Country: CN (occurrence: CN)
  Receive Date: 20160913
  Receipt Date: 20160913
  Transmission Date: 20161109
  Serious: Yes (Other)
  Sender: FDA-Public Use
  Company Number: CN-JNJFOC-20160826677

PATIENT

DRUGS (1)
  1. INFLIXIMAB [Suspect]
     Active Substance: INFLIXIMAB
     Indication: PSORIASIS
     Dosage: WEEK 0, 2, 6, 14, ONCE FOR EACH WEEK, 4 TIMES IN TOTAL
     Route: 042

REACTIONS (17)
  - Abdominal pain [Recovered/Resolved]
  - Joint swelling [Unknown]
  - Off label use [Unknown]
  - Asphyxia [Recovered/Resolved]
  - Skin lesion [Recovering/Resolving]
  - Haematology test abnormal [Unknown]
  - Chest X-ray abnormal [Unknown]
  - Eczema [Unknown]
  - Antinuclear antibody positive [Unknown]
  - Product use issue [Unknown]
  - Lupus-like syndrome [Unknown]
  - Infusion related reaction [Recovered/Resolved]
  - Neoplasm malignant [Unknown]
  - Palpitations [Recovered/Resolved]
  - Tonsillitis [Unknown]
  - Upper respiratory tract infection [Unknown]
  - Platelet count decreased [Unknown]
